FAERS Safety Report 17050122 (Version 1)
Quarter: 2019Q4

REPORT INFORMATION
  Report Type: Spontaneous
  Country: JP (occurrence: JP)
  Receive Date: 20191119
  Receipt Date: 20191119
  Transmission Date: 20200122
  Serious: Yes (Hospitalization, Other)
  Sender: FDA-Public Use
  Company Number: JP-VALIDUS PHARMACEUTICALS LLC-JP-2019VAL000746

PATIENT

DRUGS (1)
  1. LASIX [Suspect]
     Active Substance: FUROSEMIDE
     Indication: VASCULAR DEMENTIA
     Dosage: 20 MG, QD
     Route: 048

REACTIONS (7)
  - Acute kidney injury [Unknown]
  - Electrolyte imbalance [Recovered/Resolved]
  - Depressed level of consciousness [Recovering/Resolving]
  - Dry skin [Unknown]
  - Dry mouth [Unknown]
  - Hypernatraemia [Recovered/Resolved]
  - Dehydration [Unknown]
